FAERS Safety Report 9795734 (Version 1)
Quarter: 2014Q1

REPORT INFORMATION
  Report Type: Spontaneous
  Country: US (occurrence: US)
  Receive Date: 20140103
  Receipt Date: 20140103
  Transmission Date: 20141002
  Serious: Yes (Death, Hospitalization, Other)
  Sender: FDA-Public Use
  Company Number: US-UCBSA-107737

PATIENT
  Age: 58 Year
  Sex: Male

DRUGS (6)
  1. ALPRAZOLAM [Suspect]
     Dosage: INGESTION
     Route: 048
  2. OMEPRAZOLE [Suspect]
     Dosage: INGESTION
     Route: 048
  3. TRANDOLAPRIL/ VERAPAMIL [Suspect]
     Dosage: INGESTION
     Route: 048
  4. SILDENAFIL [Suspect]
     Dosage: INGESTION
     Route: 048
  5. FENOFIBRIC ACID [Suspect]
     Dosage: INGESTION
     Route: 048
  6. NAPROXEN [Suspect]
     Dosage: INGESTION
     Route: 048

REACTIONS (1)
  - Completed suicide [Fatal]
